FAERS Safety Report 24315511 (Version 1)
Quarter: 2024Q3

REPORT INFORMATION
  Report Type: Spontaneous
  Country: BR (occurrence: BR)
  Receive Date: 20240913
  Receipt Date: 20240913
  Transmission Date: 20241017
  Serious: Yes (Death, Life-Threatening, Hospitalization, Other)
  Sender: AMGEN
  Company Number: BR-AMGEN-BRASP2024177881

PATIENT
  Age: 68 Year
  Sex: Female

DRUGS (23)
  1. RITUXIMAB [Suspect]
     Active Substance: RITUXIMAB
     Indication: Diffuse large B-cell lymphoma
     Dosage: 649 MILLIGRAM, Q3WK
     Route: 042
     Dates: start: 20231024, end: 20240227
  2. VINCRISTINE [Suspect]
     Active Substance: VINCRISTINE
     Indication: Diffuse large B-cell lymphoma
     Dosage: 1 MILLIGRAM, Q3WK
     Route: 042
     Dates: start: 20231024, end: 20240206
  3. PREDNISONE [Suspect]
     Active Substance: PREDNISONE
     Indication: Diffuse large B-cell lymphoma
     Dosage: 100 MILLIGRAM, QD (C1-6, DAY 1-5, EVERY 1 DAYS)
     Route: 048
     Dates: end: 202402
  4. DOXORUBICIN [Suspect]
     Active Substance: DOXORUBICIN
     Indication: Diffuse large B-cell lymphoma
     Dosage: 87 MILLIGRAM, Q3WK
     Route: 042
     Dates: start: 20231024, end: 20240206
  5. CYCLOPHOSPHAMIDE [Suspect]
     Active Substance: CYCLOPHOSPHAMIDE
     Indication: Diffuse large B-cell lymphoma
     Dosage: 1305 MILLIGRAM, Q3WK
     Route: 042
     Dates: start: 20231024, end: 20240206
  6. ALLOPURINOL [Concomitant]
     Active Substance: ALLOPURINOL
     Indication: Prophylaxis
     Dosage: 300 MILLIGRAM
     Dates: start: 20231005
  7. ENTECAVIR [Concomitant]
     Active Substance: ENTECAVIR
     Indication: Antiviral prophylaxis
     Dosage: 0.5 MILLIGRAM, QD
     Dates: start: 20231005
  8. OMEPRAZOLE [Concomitant]
     Active Substance: OMEPRAZOLE
     Indication: Gastrooesophageal reflux prophylaxis
     Dosage: 20 MILLIGRAM, QD
     Dates: start: 20231005
  9. BACTRIM [Concomitant]
     Active Substance: SULFAMETHOXAZOLE\TRIMETHOPRIM
     Indication: Antifungal prophylaxis
     Dosage: 800/160 MG, Q3WK
     Dates: start: 20231023
  10. ACYCLOVIR [Concomitant]
     Active Substance: ACYCLOVIR
     Indication: Antiviral prophylaxis
     Dosage: 400 MILLIGRAM, Q3WK
     Dates: start: 20231023
  11. LACTULONA [Concomitant]
     Indication: Constipation
     Dosage: 40 GRAM, QD
     Dates: start: 20231107
  12. ROSUVASTATIN [Concomitant]
     Active Substance: ROSUVASTATIN\ROSUVASTATIN CALCIUM
     Indication: Dyslipidaemia
     Dosage: 40 MILLIGRAM, QD
     Dates: start: 1993
  13. EZETIMIBE [Concomitant]
     Active Substance: EZETIMIBE
     Indication: Dyslipidaemia
     Dosage: 210 MILLIGRAM, QD
     Dates: start: 202203
  14. SERTRALINE [Concomitant]
     Active Substance: SERTRALINE HYDROCHLORIDE
     Indication: Depression
     Dosage: 150 MILLIGRAM, QD
     Dates: start: 2018
  15. ASPIRIN [Concomitant]
     Active Substance: ASPIRIN
     Indication: Peripheral arterial occlusive disease
     Dosage: 100 MILLIGRAM, QD
     Dates: start: 2018
  16. BROMOPRIDE [Concomitant]
     Active Substance: BROMOPRIDE
     Indication: Prophylaxis
     Dosage: 10 MILLIGRAM, 3/DAYS
     Dates: start: 20231031
  17. HYDROXYZINE [Concomitant]
     Active Substance: HYDROXYZINE HYDROCHLORIDE
     Indication: Pruritus
     Dosage: 25 MILLIGRAM, QD
     Dates: start: 20231104
  18. BISACODYL [Concomitant]
     Active Substance: BISACODYL
     Indication: Constipation
     Dosage: 5 MILLIGRAM, QD
     Dates: start: 20231121
  19. ZOLPIDEM [Concomitant]
     Active Substance: ZOLPIDEM TARTRATE
     Indication: Prophylaxis
     Dosage: 10 MILLIGRAM, QD
     Dates: start: 20240123
  20. PREGABALIN [Concomitant]
     Active Substance: PREGABALIN
     Indication: Neuropathy peripheral
     Dosage: 150 MILLIGRAM, QD
     Dates: start: 20240227
  21. PIPERACILLIN SODIUM\TAZOBACTAM SODIUM [Concomitant]
     Active Substance: PIPERACILLIN SODIUM\TAZOBACTAM SODIUM
     Indication: Pulmonary sepsis
     Dosage: 4.5 MILLIGRAM, Q6H
     Dates: start: 20240326
  22. NISTATIN [Concomitant]
     Active Substance: NYSTATIN
     Indication: Candida infection
     Dosage: 10000 INTERNATIONAL UNIT PER LITRE, Q6H
     Dates: start: 20240403
  23. FLUCONAZOLE [Concomitant]
     Active Substance: FLUCONAZOLE
     Indication: Candida infection
     Dosage: 400 MILLIGRAM, QD
     Dates: start: 20240403

REACTIONS (11)
  - Pulmonary sepsis [Fatal]
  - Septic shock [Unknown]
  - Multiple organ dysfunction syndrome [Unknown]
  - Unevaluable event [Unknown]
  - Atrial fibrillation [Unknown]
  - Arrhythmia [Unknown]
  - Respiratory distress [Unknown]
  - White blood cell count decreased [Unknown]
  - Acinetobacter test positive [Unknown]
  - COVID-19 [Unknown]
  - Cytomegalovirus infection [Unknown]

NARRATIVE: CASE EVENT DATE: 20240326
